FAERS Safety Report 13902286 (Version 1)
Quarter: 2017Q3

REPORT INFORMATION
  Report Type: Spontaneous
  Country: US (occurrence: US)
  Receive Date: 20170824
  Receipt Date: 20170824
  Transmission Date: 20171127
  Serious: No
  Sender: FDA-Public Use
  Company Number: US-ROCHE-1130231

PATIENT

DRUGS (5)
  1. HERCEPTIN [Suspect]
     Active Substance: TRASTUZUMAB
     Indication: BREAST CANCER
     Route: 065
  2. HERCEPTIN [Suspect]
     Active Substance: TRASTUZUMAB
     Route: 065
  3. DEXAMETASON [Concomitant]
     Active Substance: DEXAMETHASONE
  4. TAXOTERE [Concomitant]
     Active Substance: DOCETAXEL
  5. VITAMIN E [Concomitant]
     Active Substance: .ALPHA.-TOCOPHEROL
     Route: 065

REACTIONS (5)
  - Cough [Unknown]
  - Alopecia [Unknown]
  - Fatigue [Unknown]
  - Performance status decreased [Unknown]
  - Neoplasm [Unknown]
